FAERS Safety Report 5800755-5 (Version None)
Quarter: 2008Q3

REPORT INFORMATION
  Report Type: 
  Country: None (occurrence: None)
  Receive Date: 20080703
  Receipt Date: 20080624
  Transmission Date: 20090109
  Serious: Yes (Hospitalization, Other)
  Sender: FDA-Public Use
  Company Number: DE-ABBOTT-08P-062-0449859-00

PATIENT
  Sex: Female
  Weight: 89 kg

DRUGS (9)
  1. HUMIRA [Suspect]
     Indication: RHEUMATOID ARTHRITIS
     Route: 058
     Dates: start: 20071130
  2. METHOTREXATE [Concomitant]
     Indication: RHEUMATOID ARTHRITIS
     Dates: end: 20080401
  3. CORTISONE [Concomitant]
     Indication: RHEUMATOID ARTHRITIS
  4. ANALGESICS [Concomitant]
     Indication: RHEUMATOID ARTHRITIS
  5. BUPRENORPHINE HCL [Concomitant]
     Indication: RHEUMATOID ARTHRITIS
  6. ETORICOXIB [Concomitant]
     Indication: RHEUMATOID ARTHRITIS
  7. AMITRIPTYLINE HCL [Concomitant]
     Indication: SLEEP DISORDER
  8. ACETAMINOPHEN [Concomitant]
     Indication: DRUG USE FOR UNKNOWN INDICATION
  9. ESOMEPRAZOLE MAGNESIUM [Concomitant]
     Indication: PROPHYLAXIS AGAINST GASTROINTESTINAL ULCER

REACTIONS (3)
  - JOINT EFFUSION [None]
  - LEUKOPENIA [None]
  - MYALGIA [None]
